FAERS Safety Report 4417844-2 (Version None)
Quarter: 2004Q2

REPORT INFORMATION
  Report Type: 
  Country: None (occurrence: None)
  Receive Date: 20040621
  Receipt Date: 20040520
  Transmission Date: 20050107
  Serious: Yes (Other)
  Sender: FDA-Public Use
  Company Number: 2004028651

PATIENT
  Age: 10 Year
  Sex: Male
  Weight: 52.8 kg

DRUGS (8)
  1. VFEND [Suspect]
     Indication: CHEST X-RAY ABNORMAL
     Dosage: 400 MG (200 MG, BID), ORAL
     Route: 048
     Dates: start: 20040308, end: 20040405
  2. VFEND [Suspect]
     Indication: FUNGAL INFECTION
     Dosage: 400 MG (200 MG, BID), ORAL
     Route: 048
     Dates: start: 20040308, end: 20040405
  3. VFEND [Suspect]
     Indication: SCEDOSPORIUM INFECTION
     Dosage: 400 MG (200 MG, BID), ORAL
     Route: 048
     Dates: start: 20040308, end: 20040405
  4. FLUTICASONE PROPIONATE [Concomitant]
  5. FEXOFENADINE HYDROCHLORIDE [Concomitant]
  6. STEROID ANTIBACTERIALS (STEROID ANTIBACTERIALS) [Concomitant]
  7. MONTELUKAST SODIUM (MONTELUKAST SODIUM) [Concomitant]
  8. FLUTICASONE PROPIONATE [Concomitant]

REACTIONS (6)
  - CHAPPED LIPS [None]
  - FEELING HOT [None]
  - FLUSHING [None]
  - HOT FLUSH [None]
  - NIGHT SWEATS [None]
  - SKIN HYPERPIGMENTATION [None]
